FAERS Safety Report 24770990 (Version 2)
Quarter: 2025Q1

REPORT INFORMATION
  Report Type: Report from Study
  Country: CO (occurrence: CO)
  Receive Date: 20241224
  Receipt Date: 20250101
  Transmission Date: 20250409
  Serious: Yes (Life-Threatening, Other)
  Sender: NOVARTIS
  Company Number: CO-002147023-NVSC2024CO242395

PATIENT
  Sex: Female
  Weight: 57 kg

DRUGS (1)
  1. ELTROMBOPAG OLAMINE [Suspect]
     Active Substance: ELTROMBOPAG OLAMINE
     Indication: Immune thrombocytopenia
     Dosage: 50 MG, QD
     Route: 048
     Dates: start: 20241004

REACTIONS (10)
  - Blood creatinine increased [Unknown]
  - Platelet count decreased [Recovered/Resolved]
  - Weight decreased [Unknown]
  - Visual impairment [Unknown]
  - Memory impairment [Unknown]
  - Illness [Unknown]
  - Dizziness [Recovered/Resolved]
  - Thyroid hormones increased [Unknown]
  - Discouragement [Recovered/Resolved]
  - Vomiting [Recovered/Resolved]
